FAERS Safety Report 5073997-7 (Version None)
Quarter: 2006Q3

REPORT INFORMATION
  Report Type: 
  Country: None (occurrence: None)
  Receive Date: 20060808
  Receipt Date: 20060727
  Transmission Date: 20061208
  Serious: Yes (Hospitalization)
  Sender: FDA-Public Use
  Company Number: IT-ROCHE-457654

PATIENT
  Age: 54 Year
  Sex: Female

DRUGS (4)
  1. ROCEPHIN [Suspect]
     Indication: HYPERTHERMIA
     Dosage: FORMULATION REPORTED AS VIAL 1 GRAM.
     Route: 042
     Dates: start: 20060627, end: 20060627
  2. BACTRIM DS [Suspect]
     Indication: HYPERTHERMIA
     Route: 048
     Dates: start: 20060627, end: 20060627
  3. ACETYLSALICYLIC ACID SRT [Suspect]
     Indication: HYPERTHERMIA
     Route: 048
     Dates: start: 20060627, end: 20060627
  4. ACETAMINOPHEN [Suspect]
     Indication: HYPERTHERMIA
     Route: 048
     Dates: start: 20060627, end: 20060627

REACTIONS (2)
  - HYPOTENSION [None]
  - URTICARIA [None]
